FAERS Safety Report 18883214 (Version 1)
Quarter: 2021Q1

REPORT INFORMATION
  Report Type: Spontaneous
  Country: US (occurrence: US)
  Receive Date: 20210212
  Receipt Date: 20210212
  Transmission Date: 20210420
  Serious: Yes (Other)
  Sender: FDA-Public Use
  Company Number: US-SA-2021SA037370

PATIENT
  Age: 62 Year
  Sex: Male

DRUGS (1)
  1. ZANTAC [Suspect]
     Active Substance: RANITIDINE HYDROCHLORIDE
     Indication: DYSPEPSIA
     Dosage: 150 MG
     Dates: start: 200608, end: 200909

REACTIONS (3)
  - Lung neoplasm malignant [Unknown]
  - Oesophageal carcinoma [Unknown]
  - Brain neoplasm malignant [Unknown]

NARRATIVE: CASE EVENT DATE: 20150501
